FAERS Safety Report 24404591 (Version 1)
Quarter: 2024Q4

REPORT INFORMATION
  Report Type: Report from Study
  Country: CN (occurrence: CN)
  Receive Date: 20241007
  Receipt Date: 20241007
  Transmission Date: 20250115
  Serious: Yes (Other)
  Sender: ROCHE
  Company Number: CN-ROCHE-10000097314

PATIENT

DRUGS (12)
  1. ATEZOLIZUMAB [Suspect]
     Active Substance: ATEZOLIZUMAB
     Indication: Small cell lung cancer extensive stage
     Route: 065
  2. TISLELIZUMAB [Suspect]
     Active Substance: TISLELIZUMAB
     Indication: Small cell lung cancer extensive stage
     Route: 065
  3. SINTILIMAB [Suspect]
     Active Substance: SINTILIMAB
     Indication: Small cell lung cancer extensive stage
     Route: 065
  4. TORIPALIMAB [Suspect]
     Active Substance: TORIPALIMAB
     Indication: Small cell lung cancer extensive stage
     Route: 065
  5. CAMRELIZUMAB [Suspect]
     Active Substance: CAMRELIZUMAB
     Indication: Small cell lung cancer extensive stage
     Route: 065
  6. NIVOLUMAB [Suspect]
     Active Substance: NIVOLUMAB
     Indication: Small cell lung cancer extensive stage
     Route: 065
  7. PEMBROLIZUMAB [Suspect]
     Active Substance: PEMBROLIZUMAB
     Indication: Small cell lung cancer extensive stage
     Route: 065
  8. ENVAFOLIMAB [Suspect]
     Active Substance: ENVAFOLIMAB
     Indication: Small cell lung cancer extensive stage
     Route: 065
  9. ETOPOSIDE [Suspect]
     Active Substance: ETOPOSIDE
     Indication: Small cell lung cancer extensive stage
     Route: 065
  10. ALBUMIN HUMAN [Suspect]
     Active Substance: ALBUMIN HUMAN
     Indication: Small cell lung cancer extensive stage
     Route: 065
  11. PACLITAXEL [Suspect]
     Active Substance: PACLITAXEL
     Indication: Small cell lung cancer extensive stage
     Route: 065
  12. IRINOTECAN [Suspect]
     Active Substance: IRINOTECAN
     Indication: Small cell lung cancer extensive stage
     Route: 065

REACTIONS (15)
  - Anaemia [Unknown]
  - White blood cell count decreased [Unknown]
  - Neutrophil count decreased [Unknown]
  - Neutrophil count decreased [Unknown]
  - Hypoalbuminaemia [Unknown]
  - Asthenia [Unknown]
  - Nausea [Unknown]
  - Vomiting [Unknown]
  - Diarrhoea [Unknown]
  - Decreased appetite [Unknown]
  - Weight decreased [Unknown]
  - Pneumonitis [Unknown]
  - Cough [Unknown]
  - Alopecia [Unknown]
  - Constipation [Unknown]
